FAERS Safety Report 22918061 (Version 3)
Quarter: 2024Q1

REPORT INFORMATION
  Report Type: Spontaneous
  Country: CA (occurrence: CA)
  Receive Date: 20230907
  Receipt Date: 20240212
  Transmission Date: 20240410
  Serious: Yes (Hospitalization, Other)
  Sender: FDA-Public Use
  Company Number: CA-BAUSCH-BL-2023-013337

PATIENT
  Age: 62 Year
  Sex: Female

DRUGS (26)
  1. DEXAMETHASONE [Suspect]
     Active Substance: DEXAMETHASONE
     Indication: Plasma cell myeloma refractory
     Route: 065
  2. DEXAMETHASONE [Suspect]
     Active Substance: DEXAMETHASONE
     Indication: Plasma cell myeloma
     Route: 065
  3. DEXAMETHASONE [Suspect]
     Active Substance: DEXAMETHASONE
     Indication: Plasma cell myeloma refractory
     Route: 065
  4. CISPLATIN [Suspect]
     Active Substance: CISPLATIN
     Indication: Plasma cell myeloma refractory
     Route: 065
  5. CISPLATIN [Suspect]
     Active Substance: CISPLATIN
     Indication: Plasma cell myeloma
  6. CYCLOPHOSPHAMIDE [Suspect]
     Active Substance: CYCLOPHOSPHAMIDE
     Indication: Plasma cell myeloma refractory
     Dosage: 1500.0 MG/M2
     Route: 065
  7. CYCLOPHOSPHAMIDE [Suspect]
     Active Substance: CYCLOPHOSPHAMIDE
     Indication: Plasma cell myeloma
     Route: 065
  8. DOXORUBICIN [Suspect]
     Active Substance: DOXORUBICIN
     Indication: Plasma cell myeloma refractory
     Dosage: DOXORUBICIN
     Route: 065
  9. DOXORUBICIN [Suspect]
     Active Substance: DOXORUBICIN
     Indication: Plasma cell myeloma
     Dosage: DOXORUBICIN HYDROCHLORIDE
     Route: 065
  10. ETOPOSIDE [Suspect]
     Active Substance: ETOPOSIDE
     Indication: Plasma cell myeloma refractory
     Route: 065
  11. ETOPOSIDE [Suspect]
     Active Substance: ETOPOSIDE
     Indication: Plasma cell myeloma
  12. CARFILZOMIB [Suspect]
     Active Substance: CARFILZOMIB
     Indication: Plasma cell myeloma
     Route: 065
  13. CARFILZOMIB [Suspect]
     Active Substance: CARFILZOMIB
     Dosage: 36.0 MG/M2
     Route: 065
  14. CARFILZOMIB [Suspect]
     Active Substance: CARFILZOMIB
     Dosage: POWDER FOR?SOLUTION?INTRAVENOUS
     Route: 065
  15. VENETOCLAX [Suspect]
     Active Substance: VENETOCLAX
     Indication: Plasma cell myeloma
     Route: 065
  16. VENETOCLAX [Suspect]
     Active Substance: VENETOCLAX
     Route: 065
  17. VENETOCLAX [Suspect]
     Active Substance: VENETOCLAX
     Route: 065
  18. VENETOCLAX [Suspect]
     Active Substance: VENETOCLAX
     Route: 065
  19. KYPROLIS [Suspect]
     Active Substance: CARFILZOMIB
     Indication: Plasma cell myeloma refractory
     Dosage: KYPROLIS FOR I.V. INFUSION. SINGLE-USE VIAL.
     Route: 042
  20. VENCLEXTA [Suspect]
     Active Substance: VENETOCLAX
     Indication: Plasma cell myeloma refractory
     Route: 065
  21. VENCLEXTA [Suspect]
     Active Substance: VENETOCLAX
     Route: 065
  22. CARFILZOMIB [Concomitant]
     Active Substance: CARFILZOMIB
     Indication: Product used for unknown indication
     Route: 065
  23. POMALIDOMIDE [Concomitant]
     Active Substance: POMALIDOMIDE
     Indication: Plasma cell myeloma
     Route: 065
  24. POMALIDOMIDE [Concomitant]
     Active Substance: POMALIDOMIDE
     Indication: Plasma cell myeloma
     Route: 065
  25. PREDNISONE [Concomitant]
     Active Substance: PREDNISONE
     Indication: Plasma cell myeloma
     Route: 065
  26. VENETOCLAX [Concomitant]
     Active Substance: VENETOCLAX
     Indication: Product used for unknown indication
     Route: 065

REACTIONS (12)
  - Confusional state [Recovering/Resolving]
  - Cytopenia [Recovering/Resolving]
  - Gastrointestinal disorder [Recovering/Resolving]
  - Plasma cell myeloma [Unknown]
  - Pyrexia [Recovering/Resolving]
  - Disease progression [Recovering/Resolving]
  - Plasma cell myeloma recurrent [Recovering/Resolving]
  - Bone marrow disorder [Recovering/Resolving]
  - Sepsis [Recovering/Resolving]
  - Plasma cell myeloma recurrent [Recovering/Resolving]
  - Product use in unapproved indication [Unknown]
  - Off label use [Recovering/Resolving]
